FAERS Safety Report 16431411 (Version 1)
Quarter: 2019Q2

REPORT INFORMATION
  Report Type: Spontaneous
  Country: US (occurrence: US)
  Receive Date: 20190614
  Receipt Date: 20190614
  Transmission Date: 20190711
  Serious: Yes (Other)
  Sender: FDA-Public Use
  Company Number: US-009507513-1906USA004131

PATIENT
  Age: 36 Year
  Sex: Female

DRUGS (10)
  1. FOLLISTIM [Suspect]
     Active Substance: FOLLITROPIN
     Indication: INFERTILITY
     Dosage: STRENGHT:900 UNITS, DOSE: 300 UNITS, QD
     Route: 058
     Dates: start: 20190222
  2. MENOPUR [Concomitant]
     Active Substance: FOLLITROPIN\LUTEINIZING HORMONE
  3. LEUPROLIDE [Concomitant]
     Active Substance: LEUPROLIDE
  4. GONADOTROPIN, CHORIONIC [Concomitant]
     Active Substance: CHORIOGONADOTROPIN ALFA
  5. OVIDREL [Concomitant]
     Active Substance: CHORIOGONADOTROPIN ALFA
  6. GANIRELIX ACETATE INJECTION [Suspect]
     Active Substance: GANIRELIX ACETATE
     Indication: INFERTILITY
     Dosage: 250 MICROGRAM, QD
     Route: 058
     Dates: start: 20190222
  7. ESTRADIOL. [Concomitant]
     Active Substance: ESTRADIOL
  8. AZITHROMYCIN ANHYDROUS. [Concomitant]
     Active Substance: AZITHROMYCIN ANHYDROUS
  9. PREGNYL [Concomitant]
     Active Substance: CHORIOGONADOTROPIN ALFA
  10. PROGESTERONE. [Concomitant]
     Active Substance: PROGESTERONE

REACTIONS (2)
  - Headache [Unknown]
  - Adverse event [Unknown]

NARRATIVE: CASE EVENT DATE: 20190610
